FAERS Safety Report 8357772-3 (Version None)
Quarter: 2012Q2

REPORT INFORMATION
  Report Type: 
  Country: None (occurrence: None)
  Receive Date: 20120514
  Receipt Date: 20110404
  Transmission Date: 20120825
  Serious: No
  Sender: FDA-Public Use
  Company Number: US-ALEXION-A201100491

PATIENT
  Sex: Male

DRUGS (5)
  1. MAGNESIUM [Concomitant]
     Dosage: 250 MG QD
     Route: 048
  2. SOLIRIS [Suspect]
     Indication: PAROXYSMAL NOCTURNAL HAEMOGLOBINURIA
     Dosage: 900 MG Q2W
     Route: 042
     Dates: start: 20071204
  3. FOLIC ACID [Concomitant]
     Dosage: 5 MG QD
     Route: 048
  4. ASPIRIN [Concomitant]
     Dosage: 81 MG DQ
     Route: 048
  5. IRON [Concomitant]
     Dosage: 27 MG QD

REACTIONS (11)
  - DEHYDRATION [None]
  - BLOOD GLUCOSE INCREASED [None]
  - BLOOD CREATININE INCREASED [None]
  - BLOOD LACTATE DEHYDROGENASE INCREASED [None]
  - GLOMERULAR FILTRATION RATE DECREASED [None]
  - HAEMATOCRIT DECREASED [None]
  - RETICULOCYTE COUNT INCREASED [None]
  - BLOOD BILIRUBIN INCREASED [None]
  - NEUTROPHIL COUNT INCREASED [None]
  - HAEMOGLOBIN DECREASED [None]
  - POOR VENOUS ACCESS [None]
